FAERS Safety Report 6581123-8 (Version None)
Quarter: 2010Q1

REPORT INFORMATION
  Report Type: 
  Country: None (occurrence: None)
  Receive Date: 20100215
  Receipt Date: 20100209
  Transmission Date: 20100710
  Serious: Yes (Other)
  Sender: FDA-Public Use
  Company Number: PHHY2010MT07021

PATIENT
  Age: 70 Year
  Sex: Female

DRUGS (2)
  1. EXELON [Suspect]
     Indication: DEMENTIA ALZHEIMER'S TYPE
     Dosage: 9.5 MG PER 24 HR
     Route: 062
     Dates: start: 20100101
  2. EXELON [Suspect]
     Dosage: 4.6 MG PER 24 HR
     Route: 062
     Dates: start: 20091201, end: 20100101

REACTIONS (1)
  - PSYCHOTIC DISORDER [None]
